FAERS Safety Report 17233717 (Version 1)
Quarter: 2020Q1

REPORT INFORMATION
  Report Type: Report from Study
  Country: CA (occurrence: CA)
  Receive Date: 20200105
  Receipt Date: 20200105
  Transmission Date: 20200409
  Serious: Yes (Other)
  Sender: FDA-Public Use
  Company Number: CA-BEH-2019111276

PATIENT
  Age: 67 Year
  Sex: Female

DRUGS (9)
  1. BERINERT [Suspect]
     Active Substance: HUMAN C1-ESTERASE INHIBITOR
     Indication: HEREDITARY ANGIOEDEMA WITH NORMAL C1 ESTERASE INHIBITOR
     Dosage: 1000 INTERNATIONAL UNIT, BIW
     Route: 042
     Dates: start: 20180824
  2. BERINERT [Suspect]
     Active Substance: HUMAN C1-ESTERASE INHIBITOR
     Indication: PROPHYLAXIS
     Dosage: UNK
     Route: 042
     Dates: start: 20191229
  3. SERTRALINE [Concomitant]
     Active Substance: SERTRALINE HYDROCHLORIDE
  4. VITAMIN D NOS [Concomitant]
     Active Substance: VITAMIN D NOS
  5. BERINERT [Suspect]
     Active Substance: HUMAN C1-ESTERASE INHIBITOR
     Indication: PROPHYLAXIS
     Dosage: UNK
     Route: 042
     Dates: start: 20191229
  6. ELTROXIN [Concomitant]
     Active Substance: LEVOTHYROXINE
  7. ELAVIL [Concomitant]
     Active Substance: AMITRIPTYLINE HYDROCHLORIDE
  8. BERINERT [Suspect]
     Active Substance: HUMAN C1-ESTERASE INHIBITOR
     Indication: HEREDITARY ANGIOEDEMA WITH NORMAL C1 ESTERASE INHIBITOR
     Dosage: 1000 INTERNATIONAL UNIT, BIW
     Route: 042
     Dates: start: 20180824
  9. QUETIAPINE. [Concomitant]
     Active Substance: QUETIAPINE

REACTIONS (3)
  - Hereditary angioedema [Recovered/Resolved]
  - No adverse event [Unknown]
  - Product use in unapproved indication [Unknown]

NARRATIVE: CASE EVENT DATE: 20191229
